FAERS Safety Report 7727281-0 (Version None)
Quarter: 2011Q3

REPORT INFORMATION
  Report Type: 
  Country: None (occurrence: None)
  Receive Date: 20110902
  Receipt Date: 20110831
  Transmission Date: 20111222
  Serious: Yes (Other)
  Sender: FDA-Public Use
  Company Number: US-BAYER-2011-079616

PATIENT
  Age: 44 Year
  Sex: Female

DRUGS (1)
  1. BETASERON [Suspect]
     Indication: MULTIPLE SCLEROSIS
     Dosage: UNK
     Route: 058
     Dates: start: 20110801, end: 20110829

REACTIONS (4)
  - FATIGUE [None]
  - HAEMATOCHEZIA [None]
  - LIVER FUNCTION TEST ABNORMAL [None]
  - CONSTIPATION [None]
